FAERS Safety Report 4446479-0 (Version None)
Quarter: 2004Q3

REPORT INFORMATION
  Report Type: 
  Country: None (occurrence: None)
  Receive Date: 20040907
  Receipt Date: 20040827
  Transmission Date: 20050211
  Serious: Yes (Hospitalization, Other)
  Sender: FDA-Public Use
  Company Number: KII-2004-0013227

PATIENT
  Age: 38 Year
  Sex: Male

DRUGS (1)
  1. MORPHINE SULFATE [Suspect]
     Indication: PAIN
     Dosage: ORAL
     Route: 048

REACTIONS (14)
  - BLOOD PH DECREASED [None]
  - CALCULUS URINARY [None]
  - DEHYDRATION [None]
  - DEPRESSED LEVEL OF CONSCIOUSNESS [None]
  - FEELING ABNORMAL [None]
  - HEART RATE INCREASED [None]
  - HYPERTENSION [None]
  - HYPOXIA [None]
  - OVERDOSE [None]
  - POLYURIA [None]
  - RESPIRATORY DEPRESSION [None]
  - STUPOR [None]
  - URINARY SEDIMENT PRESENT [None]
  - URINE ABNORMALITY [None]
